FAERS Safety Report 24386048 (Version 1)
Quarter: 2024Q4

REPORT INFORMATION
  Report Type: Spontaneous
  Country: US (occurrence: US)
  Receive Date: 20241001
  Receipt Date: 20241001
  Transmission Date: 20250115
  Serious: Yes (Other)
  Sender: DR REDDYS
  Company Number: US-DRL-USA-LIT/USA/24/0014272

PATIENT

DRUGS (4)
  1. LENALIDOMIDE [Suspect]
     Active Substance: LENALIDOMIDE
     Indication: Plasma cell myeloma
     Dosage: 25 MG PO DAYS 1-21 OF A 28 DAY CYCLE FOR 24 CYCLES
     Route: 048
  2. CARFILZOMIB [Suspect]
     Active Substance: CARFILZOMIB
     Indication: Plasma cell myeloma
     Dosage: 20/36 MG/M 2 ON DAYS 1, 2, 8, 9, 15, 16 FOR C1-8, THEN 36 MG/M 2 ON DAYS 1, 2, 15, 16 FOR C9-24
  3. DARATUMUMAB [Suspect]
     Active Substance: DARATUMUMAB
     Indication: Plasma cell myeloma
     Dosage: 16 MG/KG IV WEEKLY FOR CYCLES (C) 1 AND 2, Q2WEEKS FOR C3-8, THEN Q4WEEKS FOR C9-24
     Route: 042
  4. DEXAMETHASONE [Suspect]
     Active Substance: DEXAMETHASONE
     Indication: Plasma cell myeloma
     Dosage: 40 MG PO WEEKLY (20 MG IF AGE } 75) FOR C1-9, AND 20 MG PO WEEKLY FOR C9-24
     Route: 048

REACTIONS (1)
  - Cardiac failure [Unknown]
